FAERS Safety Report 5774892-8 (Version None)
Quarter: 2008Q2

REPORT INFORMATION
  Report Type: 
  Country: None (occurrence: None)
  Receive Date: 20080616
  Receipt Date: 20080616
  Transmission Date: 20081010
  Serious: Yes (Death)
  Sender: FDA-Public Use
  Company Number: None

PATIENT
  Sex: Male
  Weight: 78.8 kg

DRUGS (5)
  1. VINORELBINE [Suspect]
     Indication: TRANSITIONAL CELL CARCINOMA
     Dosage: 49 MG D1,D8,D15/CYCLE 042
     Dates: start: 20080519
  2. LAPATINIB [Suspect]
     Dosage: 1500 MG QD 047
     Dates: start: 20080520, end: 20080522
  3. VYTORIN [Concomitant]
  4. LISINOPRIL [Concomitant]
  5. ATENOLOL [Concomitant]

REACTIONS (5)
  - DISEASE PROGRESSION [None]
  - LUNG NEOPLASM [None]
  - PLEURAL EFFUSION [None]
  - PULMONARY EMBOLISM [None]
  - PULMONARY MASS [None]
